FAERS Safety Report 22339800 (Version 1)
Quarter: 2023Q2

REPORT INFORMATION
  Report Type: Spontaneous
  Country: ES (occurrence: ES)
  Receive Date: 20230518
  Receipt Date: 20230518
  Transmission Date: 20230721
  Serious: Yes (Other)
  Sender: FDA-Public Use
  Company Number: None

PATIENT
  Age: 31 Year
  Sex: Female
  Weight: 87 kg

DRUGS (2)
  1. EBASTINE [Suspect]
     Active Substance: EBASTINE
     Indication: Rhinitis allergic
     Dosage: 1 TABLET ONCE A DAY
     Route: 048
     Dates: start: 20230425
  2. VENTIDE [BECLOMETASONE DIPROPIONATE;SALBUTAMOL SULFATE] [Concomitant]
     Indication: Asthma
     Dosage: ON DEMAND, IN MOMENTS OF RESPIRATORY DISTRESS
     Dates: start: 20210701

REACTIONS (12)
  - Disorientation [Not Recovered/Not Resolved]
  - Disorientation [Not Recovered/Not Resolved]
  - Insomnia [Not Recovered/Not Resolved]
  - Disturbance in social behaviour [Not Recovered/Not Resolved]
  - Nausea [Not Recovered/Not Resolved]
  - Heart rate increased [Not Recovered/Not Resolved]
  - Hallucination [Not Recovered/Not Resolved]
  - Dizziness [Not Recovered/Not Resolved]
  - Depressed mood [Not Recovered/Not Resolved]
  - Disturbance in attention [Not Recovered/Not Resolved]
  - Asthenia [Not Recovered/Not Resolved]
  - Dysarthria [Not Recovered/Not Resolved]

NARRATIVE: CASE EVENT DATE: 20230428
